FAERS Safety Report 16483371 (Version 1)
Quarter: 2019Q2

REPORT INFORMATION
  Report Type: Spontaneous
  Country: FR (occurrence: FR)
  Receive Date: 20190627
  Receipt Date: 20190627
  Transmission Date: 20190711
  Serious: Yes (Other)
  Sender: FDA-Public Use
  Company Number: FR-PFIZER INC-2019268616

PATIENT
  Age: 77 Year
  Sex: Female

DRUGS (15)
  1. AMLOR [Concomitant]
     Active Substance: AMLODIPINE BESYLATE
     Dosage: UNK
  2. INEXIUM [Concomitant]
     Active Substance: ESOMEPRAZOLE
  3. KARDEGIC [Concomitant]
     Active Substance: ASPIRIN DL-LYSINE
  4. LASILIX [Suspect]
     Active Substance: FUROSEMIDE
     Indication: HYPERTENSION
     Dosage: UNK
     Route: 048
     Dates: start: 201803
  5. APIDRA [Concomitant]
     Active Substance: INSULIN GLULISINE
     Dosage: UNK
  6. CLOPIDOGREL [CLOPIDOGREL HYDROCHLORIDE] [Concomitant]
     Dosage: UNK
  7. CANDESARTAN CILEXETIL. [Concomitant]
     Active Substance: CANDESARTAN CILEXETIL
  8. LANTUS [Concomitant]
     Active Substance: INSULIN GLARGINE
     Dosage: UNK
  9. EUPRESSYL [Concomitant]
     Active Substance: URAPIDIL
  10. BOSULIF [Suspect]
     Active Substance: BOSUTINIB MONOHYDRATE
     Indication: CHRONIC MYELOID LEUKAEMIA
     Dosage: ALTERNATION BETWEEN 300 AND 200 MG
     Route: 048
  11. TRAMADOL HYDROCHLORIDE. [Concomitant]
     Active Substance: TRAMADOL HYDROCHLORIDE
     Dosage: UNK
  12. ALPRAZOLAM. [Concomitant]
     Active Substance: ALPRAZOLAM
  13. OROZAMUDOL [Concomitant]
     Active Substance: TRAMADOL
  14. VALSARTAN. [Concomitant]
     Active Substance: VALSARTAN
     Dosage: UNK
  15. SELOKEN [METOPROLOL TARTRATE] [Concomitant]
     Active Substance: METOPROLOL TARTRATE
     Dosage: UNK

REACTIONS (3)
  - Onycholysis [Not Recovered/Not Resolved]
  - Nail discolouration [Not Recovered/Not Resolved]
  - Dermatitis [Not Recovered/Not Resolved]

NARRATIVE: CASE EVENT DATE: 201803
